FAERS Safety Report 18956660 (Version 1)
Quarter: 2021Q1

REPORT INFORMATION
  Report Type: Spontaneous
  Country: US (occurrence: US)
  Receive Date: 20210302
  Receipt Date: 20210302
  Transmission Date: 20210420
  Serious: No
  Sender: FDA-Public Use
  Company Number: US-SA-2021SA067258

PATIENT
  Sex: Female

DRUGS (10)
  1. PROPRANOLOL HCL [Concomitant]
     Active Substance: PROPRANOLOL HYDROCHLORIDE
  2. ACYCLOVIR ABBOTT VIAL [Concomitant]
  3. KEVZARA [Suspect]
     Active Substance: SARILUMAB
     Indication: RHEUMATOID ARTHRITIS
     Dosage: 200 MG, QOW
     Route: 058
  4. COVID?19 VACCINE NOS. [Concomitant]
     Active Substance: COVID-19 VACCINE NOS
  5. AMILORIDE + HIDROCLOROTIAZIDA [Concomitant]
     Active Substance: AMILORIDE HYDROCHLORIDE\HYDROCHLOROTHIAZIDE
  6. CHLORIDE [Concomitant]
     Active Substance: CHLORIDE ION
  7. TRETINOIN. [Concomitant]
     Active Substance: TRETINOIN
  8. DEXILANT [Concomitant]
     Active Substance: DEXLANSOPRAZOLE
  9. TRAZODONE HYDROCHLORIDE. [Concomitant]
     Active Substance: TRAZODONE HYDROCHLORIDE
  10. CLINDAMYCIN. [Concomitant]
     Active Substance: CLINDAMYCIN

REACTIONS (1)
  - Intentional dose omission [Unknown]
